FAERS Safety Report 7002471-3 (Version None)
Quarter: 2010Q3

REPORT INFORMATION
  Report Type: 
  Country: None (occurrence: None)
  Receive Date: 20100920
  Receipt Date: 20100909
  Transmission Date: 20110219
  Serious: Yes (Hospitalization)
  Sender: FDA-Public Use
  Company Number: GB-ASTRAZENECA-2010SE42456

PATIENT
  Age: 34362 Day
  Sex: Female
  Weight: 55 kg

DRUGS (7)
  1. FASLODEX [Suspect]
     Indication: BREAST CANCER METASTATIC
     Route: 030
     Dates: start: 20100708, end: 20100708
  2. FASLODEX [Suspect]
     Indication: BREAST CANCER
     Route: 030
     Dates: start: 20100708, end: 20100708
  3. PLACEBO [Suspect]
     Indication: BREAST CANCER METASTATIC
     Dosage: DAILY
     Route: 048
  4. PLACEBO [Suspect]
     Indication: BREAST CANCER
     Dosage: DAILY
     Route: 048
  5. LETROZOLE [Concomitant]
     Indication: BENIGN ENDOCRINE NEOPLASM
  6. IBANDRONATE SODIUM [Concomitant]
  7. RADIOTHERAPY [Concomitant]
     Indication: BREAST CANCER METASTATIC

REACTIONS (2)
  - HEAD INJURY [None]
  - HYPOKALAEMIA [None]
